FAERS Safety Report 23100151 (Version 7)
Quarter: 2024Q1

REPORT INFORMATION
  Report Type: Report from Study
  Country: US (occurrence: US)
  Receive Date: 20231024
  Receipt Date: 20240313
  Transmission Date: 20240409
  Serious: Yes (Hospitalization)
  Sender: FDA-Public Use
  Company Number: US-INSMED-2023-02714-USAA

PATIENT
  Age: 77 Year
  Sex: Male

DRUGS (5)
  1. ARIKAYCE [Suspect]
     Active Substance: AMIKACIN
     Indication: Mycobacterium avium complex infection
     Dosage: 590 MILLIGRAM, QD
     Route: 055
     Dates: start: 20230713, end: 20230809
  2. ARIKAYCE [Suspect]
     Active Substance: AMIKACIN
     Dosage: UNK MILLIGRAM
     Route: 055
     Dates: start: 202308, end: 2023
  3. ARIKAYCE [Suspect]
     Active Substance: AMIKACIN
     Dosage: 590 MILLIGRAM, QD
     Route: 055
     Dates: start: 2023, end: 2023
  4. ARIKAYCE [Suspect]
     Active Substance: AMIKACIN
     Dosage: 590 MILLIGRAM, QD
     Route: 055
     Dates: start: 2023, end: 2023
  5. ARIKAYCE [Suspect]
     Active Substance: AMIKACIN
     Dosage: 590 MILLIGRAM, QD
     Route: 055
     Dates: start: 2023

REACTIONS (9)
  - Hospitalisation [Unknown]
  - Hospitalisation [Unknown]
  - Urinary tract infection [Recovered/Resolved]
  - Dry throat [Recovered/Resolved]
  - Secretion discharge [Not Recovered/Not Resolved]
  - Cough [Recovered/Resolved]
  - Intentional dose omission [Unknown]
  - Therapy interrupted [Unknown]
  - Product dose omission issue [Unknown]

NARRATIVE: CASE EVENT DATE: 20230713
